FAERS Safety Report 5963115-2 (Version None)
Quarter: 2008Q4

REPORT INFORMATION
  Report Type: 
  Country: None (occurrence: None)
  Receive Date: 20081124
  Receipt Date: 20081114
  Transmission Date: 20090506
  Serious: Yes (Other)
  Sender: FDA-Public Use
  Company Number: CA-JNJFOC-20081104211

PATIENT
  Sex: Female
  Weight: 70.2 kg

DRUGS (1)
  1. REMICADE [Suspect]
     Indication: CROHN'S DISEASE
     Dosage: TOTAL OF 10 DOSES WERE ADMINISTERED
     Route: 042

REACTIONS (3)
  - GALLBLADDER DISORDER [None]
  - NAUSEA [None]
  - PAIN [None]
